FAERS Safety Report 19911469 (Version 3)
Quarter: 2021Q4

REPORT INFORMATION
  Report Type: Spontaneous
  Country: JP (occurrence: JP)
  Receive Date: 20211004
  Receipt Date: 20211103
  Transmission Date: 20220303
  Serious: Yes (Death, Other)
  Sender: FDA-Public Use
  Company Number: JP-NOVOPROD-852198

PATIENT
  Age: 38 Year
  Sex: Male
  Weight: 65 kg

DRUGS (32)
  1. NOVOSEVEN [Suspect]
     Active Substance: COAGULATION FACTOR VIIA RECOMBINANT HUMAN
     Indication: Haemophilia B with anti factor IX
     Dosage: 5MG, Q6H
     Route: 042
     Dates: start: 20210807
  2. NOVOSEVEN [Suspect]
     Active Substance: COAGULATION FACTOR VIIA RECOMBINANT HUMAN
     Dosage: CONTINUOUSLY RECEIVED NOVOSEVEN AT 5MG
     Route: 042
     Dates: start: 20210905
  3. NOVOSEVEN [Suspect]
     Active Substance: COAGULATION FACTOR VIIA RECOMBINANT HUMAN
     Dosage: 5MG AT 01:00, 04:00, 10:00, 13:00, 16:00, AND 22:00
     Route: 042
     Dates: start: 20210904
  4. NOVOSEVEN [Suspect]
     Active Substance: COAGULATION FACTOR VIIA RECOMBINANT HUMAN
     Dosage: 5MG AT 01:00, 03:00, 05:00, 13:00, 15:00, AND 17:00
     Route: 042
     Dates: start: 20210903
  5. NOVOSEVEN [Suspect]
     Active Substance: COAGULATION FACTOR VIIA RECOMBINANT HUMAN
     Dosage: 5MG AT 01:00, 04:00, 07:00, 10:00, 13:00, AND 16:00.
     Route: 042
     Dates: start: 20210902
  6. NOVOSEVEN [Suspect]
     Active Substance: COAGULATION FACTOR VIIA RECOMBINANT HUMAN
     Dosage: 5MG AT 02:00, 04:30, 07:30, 10:00, 13:00, 16:00, 19:00, AND 22:00.
     Route: 042
     Dates: start: 20210901
  7. NOVOSEVEN [Suspect]
     Active Substance: COAGULATION FACTOR VIIA RECOMBINANT HUMAN
     Dosage: 5MG AT 00:00, 03:00, 06:00, AND 09:00
     Route: 042
     Dates: start: 20210831
  8. NOVOSEVEN [Suspect]
     Active Substance: COAGULATION FACTOR VIIA RECOMBINANT HUMAN
     Indication: Ureteric operation
     Dosage: 5MG, Q3H
     Route: 042
     Dates: start: 20210809
  9. NOVOSEVEN [Suspect]
     Active Substance: COAGULATION FACTOR VIIA RECOMBINANT HUMAN
     Indication: Haematuria
     Dosage: 5MG, Q6H
     Route: 042
     Dates: start: 20210813
  10. NOVOSEVEN [Suspect]
     Active Substance: COAGULATION FACTOR VIIA RECOMBINANT HUMAN
     Dosage: 5MG, Q12H
     Route: 042
     Dates: start: 20210825
  11. NOVOSEVEN [Suspect]
     Active Substance: COAGULATION FACTOR VIIA RECOMBINANT HUMAN
     Dosage: EVERY 6 HOURS (AT 5MG AT 12:00 AND 18:00)
     Route: 042
     Dates: start: 20210827
  12. NOVOSEVEN [Suspect]
     Active Substance: COAGULATION FACTOR VIIA RECOMBINANT HUMAN
     Dosage: 5MG AT 00:00, 06:00, 15:00, 18:00, AND 21:00.
     Route: 042
     Dates: start: 20210828
  13. NOVOSEVEN [Suspect]
     Active Substance: COAGULATION FACTOR VIIA RECOMBINANT HUMAN
     Dosage: 5MG AT 00:00, 03:00, 06:00, 09:00, 15:00, 18:00, AND 21:00.
     Route: 042
     Dates: start: 20210829
  14. NOVOSEVEN [Suspect]
     Active Substance: COAGULATION FACTOR VIIA RECOMBINANT HUMAN
     Dosage: 5MG AT 00:00, 03:00, 06:00, 09:00, 12:00, 15:00, 18:00, AND 21:00
     Route: 042
     Dates: start: 20210830
  15. NOVOSEVEN [Suspect]
     Active Substance: COAGULATION FACTOR VIIA RECOMBINANT HUMAN
     Dosage: 5MG AT 00:00, 03:00, 06:00, AND 09:00
     Route: 042
     Dates: start: 20210831
  16. BYCLOT [Concomitant]
     Active Substance: COAGULATION FACTOR VII HUMAN\COAGULATION FACTOR X HUMAN
     Dosage: 4 VIALS (V) EVERY 36 HOURS
     Route: 042
     Dates: start: 20210827
  17. BYCLOT [Concomitant]
     Active Substance: COAGULATION FACTOR VII HUMAN\COAGULATION FACTOR X HUMAN
     Dosage: 4V AT 09:00
     Route: 042
     Dates: start: 20210828
  18. BYCLOT [Concomitant]
     Active Substance: COAGULATION FACTOR VII HUMAN\COAGULATION FACTOR X HUMAN
     Dosage: 3V
     Route: 042
     Dates: start: 20210829
  19. BYCLOT [Concomitant]
     Active Substance: COAGULATION FACTOR VII HUMAN\COAGULATION FACTOR X HUMAN
     Dosage: 4V AT 12:00
     Route: 042
     Dates: start: 20210831
  20. BYCLOT [Concomitant]
     Active Substance: COAGULATION FACTOR VII HUMAN\COAGULATION FACTOR X HUMAN
     Dosage: 4V AT 12:00, 3V AT 20:00
     Route: 042
     Dates: start: 20210831
  21. BYCLOT [Concomitant]
     Active Substance: COAGULATION FACTOR VII HUMAN\COAGULATION FACTOR X HUMAN
     Dosage: AT 21:00
     Route: 042
     Dates: start: 20210826
  22. BYCLOT [Concomitant]
     Active Substance: COAGULATION FACTOR VII HUMAN\COAGULATION FACTOR X HUMAN
     Indication: Haemophilia B with anti factor IX
     Dosage: UNK
     Route: 042
  23. FENOFIBRATE [Concomitant]
     Active Substance: FENOFIBRATE
     Indication: Dyslipidaemia
     Dosage: 80 MG, QD
     Route: 048
  24. OLMESARTAN [Concomitant]
     Active Substance: OLMESARTAN
     Indication: Hypertension
     Dosage: 20 MG, QD
     Route: 048
  25. LANSOPRAZOLE [Concomitant]
     Active Substance: LANSOPRAZOLE
     Indication: Chronic gastritis
     Dosage: 15 MG, QD
     Route: 048
  26. MARAVIROC [Concomitant]
     Active Substance: MARAVIROC
     Indication: HIV infection
     Dosage: 600 MG, BID
     Route: 048
  27. ISENTRESS [Concomitant]
     Active Substance: RALTEGRAVIR POTASSIUM
     Indication: HIV infection
     Dosage: 400 MG, BID
     Route: 048
  28. DESCOVY [Concomitant]
     Active Substance: EMTRICITABINE\TENOFOVIR ALAFENAMIDE FUMARATE
     Indication: HIV infection
     Dosage: 1 DF, QD
     Route: 048
  29. INTELENCE [Concomitant]
     Active Substance: ETRAVIRINE
     Indication: HIV infection
     Dosage: 200 MG, BID
     Route: 048
  30. FEIBA [Concomitant]
     Active Substance: ANTI-INHIBITOR COAGULANT COMPLEX
     Dosage: AT 07:00 AND 19:00.
     Dates: start: 20210904, end: 20210905
  31. FEIBA [Concomitant]
     Active Substance: ANTI-INHIBITOR COAGULANT COMPLEX
     Dosage: AT 07:00 AND 19:00
     Dates: start: 20210903
  32. FEIBA [Concomitant]
     Active Substance: ANTI-INHIBITOR COAGULANT COMPLEX
     Indication: Haemophilia B with anti factor IX
     Dosage: 6V EVERY 12 HOURS
     Dates: start: 20210902

REACTIONS (3)
  - Traumatic intracranial haemorrhage [Fatal]
  - Septic shock [Recovering/Resolving]
  - Haematuria [Unknown]

NARRATIVE: CASE EVENT DATE: 20210809
